FAERS Safety Report 12998006 (Version 2)
Quarter: 2017Q2

REPORT INFORMATION
  Report Type: Report from Study
  Country: US (occurrence: US)
  Receive Date: 20161205
  Receipt Date: 20170504
  Transmission Date: 20170830
  Serious: Yes (Hospitalization, Other)
  Sender: FDA-Public Use
  Company Number: US-SA-2016SA220574

PATIENT
  Age: 74 Year
  Sex: Female

DRUGS (2)
  1. PRALUENT [Suspect]
     Active Substance: ALIROCUMAB
     Indication: HYPERLIPIDAEMIA
     Route: 058
     Dates: start: 201609, end: 201703
  2. ALIROCUMAB PREFILLED PEN [Concomitant]
     Active Substance: ALIROCUMAB
     Indication: HYPERLIPIDAEMIA
     Dates: start: 201609

REACTIONS (7)
  - Cataract [Not Recovered/Not Resolved]
  - Influenza [Recovering/Resolving]
  - Visual impairment [Not Recovered/Not Resolved]
  - Gout [Recovering/Resolving]
  - Inappropriate schedule of drug administration [Unknown]
  - Product supply issue [Unknown]
  - Pneumonia [Recovering/Resolving]

NARRATIVE: CASE EVENT DATE: 201611
